FAERS Safety Report 16166800 (Version 2)
Quarter: 2019Q2

REPORT INFORMATION
  Report Type: Spontaneous
  Country: US (occurrence: US)
  Receive Date: 20190407
  Receipt Date: 20190604
  Transmission Date: 20190711
  Serious: Yes (Other)
  Sender: FDA-Public Use
  Company Number: US-BRISTOL-MYERS SQUIBB COMPANY-BMS-2019-012183

PATIENT
  Sex: Female

DRUGS (1)
  1. OPDIVO [Suspect]
     Active Substance: NIVOLUMAB
     Indication: RENAL CELL CARCINOMA
     Dosage: 240 MILLIGRAM, Q2WK
     Route: 042

REACTIONS (6)
  - Blood pressure increased [Unknown]
  - Intra-abdominal fluid collection [Unknown]
  - Loss of consciousness [Unknown]
  - Flatulence [Unknown]
  - Heart rate increased [Unknown]
  - Weight decreased [Unknown]
